FAERS Safety Report 24384628 (Version 1)
Quarter: 2024Q4

REPORT INFORMATION
  Report Type: Spontaneous
  Country: US (occurrence: US)
  Receive Date: 20241001
  Receipt Date: 20241001
  Transmission Date: 20250114
  Serious: No
  Sender: INCYTE
  Company Number: US-INCYTE CORPORATION-2024IN009926

PATIENT

DRUGS (16)
  1. ICLUSIG [Suspect]
     Active Substance: PONATINIB\PONATINIB HYDROCHLORIDE
     Indication: Myeloproliferative neoplasm
     Dosage: UNK
     Route: 065
  2. ICLUSIG [Suspect]
     Active Substance: PONATINIB\PONATINIB HYDROCHLORIDE
     Indication: RUNX1 gene mutation
  3. PEMAZYRE [Suspect]
     Active Substance: PEMIGATINIB
     Indication: Myeloproliferative neoplasm
     Dosage: UNK
     Route: 065
  4. PEMAZYRE [Suspect]
     Active Substance: PEMIGATINIB
     Indication: RUNX1 gene mutation
  5. AXITINIB [Suspect]
     Active Substance: AXITINIB
     Indication: Myeloproliferative neoplasm
     Dosage: UNK
     Route: 065
  6. AXITINIB [Suspect]
     Active Substance: AXITINIB
     Indication: RUNX1 gene mutation
  7. CEDIRANIB [Suspect]
     Active Substance: CEDIRANIB
     Indication: Myeloproliferative neoplasm
     Dosage: UNK
     Route: 065
  8. CEDIRANIB [Suspect]
     Active Substance: CEDIRANIB
     Indication: RUNX1 gene mutation
  9. DOVITINIB [Suspect]
     Active Substance: DOVITINIB
     Indication: Myeloproliferative neoplasm
     Dosage: UNK
     Route: 065
  10. DOVITINIB [Suspect]
     Active Substance: DOVITINIB
     Indication: RUNX1 gene mutation
  11. LENVATINIB [Suspect]
     Active Substance: LENVATINIB
     Indication: Myeloproliferative neoplasm
     Dosage: UNK
     Route: 065
  12. LENVATINIB [Suspect]
     Active Substance: LENVATINIB
     Indication: RUNX1 gene mutation
  13. BORTEZOMIB [Concomitant]
     Active Substance: BORTEZOMIB
     Indication: Myeloproliferative neoplasm
     Dosage: UNK
     Route: 065
  14. BORTEZOMIB [Concomitant]
     Active Substance: BORTEZOMIB
     Indication: RUNX1 gene mutation
  15. CYCLOPHOSPHAMIDE;DEXAMETHASONE;DOXORUBICIN;VINCRISTINE SULFATE [Concomitant]
     Indication: Myeloproliferative neoplasm
     Dosage: UNK
     Route: 065
  16. CYCLOPHOSPHAMIDE;DEXAMETHASONE;DOXORUBICIN;VINCRISTINE SULFATE [Concomitant]
     Indication: RUNX1 gene mutation

REACTIONS (4)
  - Off label use [Unknown]
  - Drug effective for unapproved indication [Unknown]
  - Drug resistance [Unknown]
  - Drug intolerance [Unknown]
